FAERS Safety Report 11777836 (Version 2)
Quarter: 2016Q4

REPORT INFORMATION
  Report Type: Spontaneous
  Country: US (occurrence: US)
  Receive Date: 20151125
  Receipt Date: 20161124
  Transmission Date: 20170206
  Serious: Yes (Life-Threatening)
  Sender: FDA-Public Use
  Company Number: US-THE MEDICINES COMPANY-US-MDCO-15-00185

PATIENT
  Age: 61 Year
  Sex: Female
  Weight: 64.41 kg

DRUGS (3)
  1. ANGIOMAX [Suspect]
     Active Substance: BIVALIRUDIN
     Route: 040
     Dates: start: 20150330, end: 20150330
  2. ANGIOMAX [Suspect]
     Active Substance: BIVALIRUDIN
     Dosage: 23 ML/HR
     Route: 041
     Dates: start: 20150330
  3. ANGIOMAX [Suspect]
     Active Substance: BIVALIRUDIN
     Indication: PERCUTANEOUS CORONARY INTERVENTION
     Route: 040
     Dates: start: 20150330, end: 20150330

REACTIONS (3)
  - Vascular stent thrombosis [Recovered/Resolved]
  - Drug ineffective [Recovered/Resolved]
  - Coagulation time abnormal [Recovered/Resolved]

NARRATIVE: CASE EVENT DATE: 20150330
